FAERS Safety Report 4763239-1 (Version None)
Quarter: 2005Q3

REPORT INFORMATION
  Report Type: 
  Country: None (occurrence: None)
  Receive Date: 20050902
  Receipt Date: 20050822
  Transmission Date: 20060218
  Serious: Yes (Other)
  Sender: FDA-Public Use
  Company Number: EML2005-0408

PATIENT
  Age: 64 Year
  Sex: Female

DRUGS (3)
  1. TOBI [Suspect]
     Indication: BRONCHIECTASIS
     Dosage: 300 MG, BID, INHALATION
     Route: 055
     Dates: start: 20040101, end: 20050630
  2. SPIRIVA [Concomitant]
  3. FLIXOTIDE ^GLAXO^ (FLUTICASONE PROPIONATE) [Concomitant]

REACTIONS (2)
  - HYPOACUSIS [None]
  - OTOTOXICITY [None]
